FAERS Safety Report 5058182-7 (Version None)
Quarter: 2006Q3

REPORT INFORMATION
  Report Type: 
  Country: None (occurrence: None)
  Receive Date: 20060721
  Receipt Date: 20060629
  Transmission Date: 20061208
  Serious: Yes (Hospitalization, Other)
  Sender: FDA-Public Use
  Company Number: DE-BRISTOL-MYERS SQUIBB COMPANY-13428339

PATIENT
  Age: 49 Year
  Sex: Female
  Weight: 67 kg

DRUGS (6)
  1. CYCLOPHOSPHAMIDE [Suspect]
     Indication: BREAST CANCER
     Route: 042
     Dates: start: 20060422, end: 20060522
  2. TAXOL [Suspect]
     Indication: BREAST CANCER
     Route: 042
     Dates: start: 20060606, end: 20060619
  3. EPIRUBICIN [Suspect]
     Indication: BREAST CANCER
     Dates: start: 20060410, end: 20060522
  4. CAPECITABINE [Suspect]
     Indication: BREAST CANCER
     Route: 048
     Dates: start: 20060607, end: 20060620
  5. ARANESP [Concomitant]
     Dates: start: 20060412, end: 20060612
  6. FERROUS [Concomitant]
     Dates: start: 20060410

REACTIONS (3)
  - GASTROENTERITIS [None]
  - LEUKOPENIA [None]
  - NEUTROPENIA [None]
